FAERS Safety Report 8537056-0 (Version None)
Quarter: 2012Q3

REPORT INFORMATION
  Report Type: 
  Country: None (occurrence: None)
  Receive Date: 20120725
  Receipt Date: 20120718
  Transmission Date: 20120928
  Serious: Yes (Other)
  Sender: FDA-Public Use
  Company Number: BR-PFIZER INC-2012174440

PATIENT
  Age: 66 Year
  Sex: Female

DRUGS (2)
  1. LIPITOR [Suspect]
     Indication: BLOOD CHOLESTEROL
     Dosage: 20 MG, 2X/DAY
     Route: 048
     Dates: start: 20120618
  2. XALATAN [Suspect]
     Indication: GLAUCOMA
     Dosage: 3 UG (ONE DROP IN EACH EYE), 2X/DAY
     Route: 047
     Dates: start: 20080718, end: 20090101

REACTIONS (4)
  - INTRAOCULAR PRESSURE INCREASED [None]
  - OFF LABEL USE [None]
  - VISUAL IMPAIRMENT [None]
  - BLOOD CHOLESTEROL INCREASED [None]
